FAERS Safety Report 8589101-4 (Version None)
Quarter: 2012Q3

REPORT INFORMATION
  Report Type: 
  Country: None (occurrence: None)
  Receive Date: 20120813
  Receipt Date: 20120613
  Transmission Date: 20120928
  Serious: Yes (Other)
  Sender: FDA-Public Use
  Company Number: JP-009507513-1208JPN004947

PATIENT

DRUGS (12)
  1. ASPIRIN [Concomitant]
     Indication: ANGINA PECTORIS
     Route: 048
  2. REBETOL [Suspect]
     Indication: HEPATITIS C
     Route: 048
     Dates: start: 20120403, end: 20120415
  3. EPADEL [Concomitant]
     Indication: HYPERLIPIDAEMIA
     Route: 048
  4. REBETOL [Suspect]
     Route: 048
     Dates: start: 20120416
  5. ASPARA K [Concomitant]
     Indication: HYPOKALAEMIA
     Route: 048
  6. LIVALO [Concomitant]
     Indication: HYPERLIPIDAEMIA
     Route: 048
  7. TELAVIC [Suspect]
     Indication: HEPATITIS C
     Route: 048
     Dates: start: 20120403
  8. LEVOTHYROXINE SODIUM [Concomitant]
     Indication: HYPOTHYROIDISM
     Route: 048
  9. OLMESARTAN MEDOXOMIL [Concomitant]
     Indication: HYPERTENSION
     Route: 048
  10. SEFTAC [Concomitant]
     Indication: GASTRITIS
     Route: 048
  11. EURODIN (DIHYDROERGOCRISTINE MESYLATE) [Concomitant]
     Indication: INSOMNIA
     Route: 048
  12. PEG-INTRON [Suspect]
     Indication: HEPATITIS C
     Dosage: 1.5MCG/KG/WEEK
     Route: 058
     Dates: start: 20120403

REACTIONS (1)
  - ANAEMIA [None]
